FAERS Safety Report 10206314 (Version 1)
Quarter: 2014Q2

REPORT INFORMATION
  Report Type: Spontaneous
  Country: US (occurrence: None)
  Receive Date: 20140527
  Receipt Date: 20140527
  Transmission Date: 20141212
  Serious: Yes (Hospitalization)
  Sender: FDA-Public Use
  Company Number: None

PATIENT
  Age: 25 Year
  Sex: Male
  Weight: 82.56 kg

DRUGS (2)
  1. DICYCLOMINE [Suspect]
     Indication: CROHN^S DISEASE
     Dosage: 1 PILL
     Route: 048
     Dates: start: 20140521, end: 20140522
  2. DICYCLOMINE [Suspect]
     Indication: GASTROINTESTINAL PAIN
     Dosage: 1 PILL
     Route: 048
     Dates: start: 20140521, end: 20140522

REACTIONS (15)
  - Headache [None]
  - Tremor [None]
  - Hypoaesthesia [None]
  - Feeling cold [None]
  - Facial paresis [None]
  - Muscular weakness [None]
  - Muscular weakness [None]
  - Paraesthesia [None]
  - Hypoaesthesia [None]
  - Muscle rigidity [None]
  - Gastric pH decreased [None]
  - Dyspepsia [None]
  - Eructation [None]
  - Non-cardiac chest pain [None]
  - Oropharyngeal pain [None]
